FAERS Safety Report 18051460 (Version 2)
Quarter: 2020Q3

REPORT INFORMATION
  Report Type: Spontaneous
  Country: US (occurrence: US)
  Receive Date: 20200722
  Receipt Date: 20200811
  Transmission Date: 20201103
  Serious: No
  Sender: FDA-Public Use
  Company Number: US-VIIV HEALTHCARE LIMITED-US2020AMR135769

PATIENT
  Sex: Female

DRUGS (1)
  1. TRIUMEQ [Suspect]
     Active Substance: ABACAVIR SULFATE\DOLUTEGRAVIR SODIUM\LAMIVUDINE
     Indication: HIV INFECTION
     Dosage: 1 DF, QD (600 MG OF ABACAVIR, 50 MG OF DOLUTEGRAVIR, AND 300 MG OF LAMIVUDINE ONCE A DAY)

REACTIONS (2)
  - Product dose omission issue [Unknown]
  - Social problem [Unknown]
